FAERS Safety Report 20045270 (Version 1)
Quarter: 2021Q4

REPORT INFORMATION
  Report Type: Spontaneous
  Country: US (occurrence: US)
  Receive Date: 20211108
  Receipt Date: 20211108
  Transmission Date: 20220303
  Serious: No
  Sender: FDA-Public Use
  Company Number: US-PFIZER INC-202101140439

PATIENT
  Age: 56 Year
  Sex: Female

DRUGS (2)
  1. TOZINAMERAN [Suspect]
     Active Substance: TOZINAMERAN
     Indication: COVID-19 immunisation
     Dosage: DOSE 3, (BOOSTER) SINGLE
     Dates: start: 20210825, end: 20210825
  2. XELJANZ XR [Suspect]
     Active Substance: TOFACITINIB CITRATE
     Dosage: 11 MG, DAILY
     Route: 048
     Dates: start: 20201001

REACTIONS (6)
  - Illness [Recovered/Resolved]
  - Arthritis [Unknown]
  - Skin warm [Unknown]
  - Erythema [Unknown]
  - Pain [Recovered/Resolved]
  - Immunisation [Unknown]

NARRATIVE: CASE EVENT DATE: 20210101
